FAERS Safety Report 10794238 (Version 2)
Quarter: 2015Q1

REPORT INFORMATION
  Report Type: Spontaneous
  Country: US (occurrence: US)
  Receive Date: 20150213
  Receipt Date: 20150226
  Transmission Date: 20150721
  Serious: Yes (Disabling)
  Sender: FDA-Public Use
  Company Number: US-ACTELION-A-NJ2015-112587

PATIENT
  Age: 54 Year
  Sex: Female

DRUGS (14)
  1. ADCIRCA [Concomitant]
     Active Substance: TADALAFIL
     Dosage: 20 MG, BID
     Dates: start: 20140922
  2. METOPROLOL [Concomitant]
     Active Substance: METOPROLOL
  3. TYVASO [Concomitant]
     Active Substance: TREPROSTINIL
     Dosage: 6 MG/ML, 9
     Dates: start: 20140922
  4. SPIRONOLACTONE. [Concomitant]
     Active Substance: SPIRONOLACTONE
  5. OPSUMIT [Suspect]
     Active Substance: MACITENTAN
     Indication: PULMONARY ARTERIAL HYPERTENSION
     Dosage: 10 MG, UNK
     Route: 048
     Dates: start: 20150107
  6. PREDNISONE. [Concomitant]
     Active Substance: PREDNISONE
  7. FOLIC ACID. [Concomitant]
     Active Substance: FOLIC ACID
  8. POTASSIUM [Concomitant]
     Active Substance: POTASSIUM
  9. VENTOLIN [Concomitant]
     Active Substance: ALBUTEROL SULFATE
  10. WARFARIN [Concomitant]
     Active Substance: WARFARIN
  11. ENBREL [Concomitant]
     Active Substance: ETANERCEPT
  12. METHOTREXATE [Concomitant]
     Active Substance: METHOTREXATE
  13. METFORMIN [Concomitant]
     Active Substance: METFORMIN HYDROCHLORIDE
     Indication: ESSENTIAL HYPERTENSION
  14. LISINOPRIL. [Concomitant]
     Active Substance: LISINOPRIL

REACTIONS (1)
  - Epistaxis [Not Recovered/Not Resolved]

NARRATIVE: CASE EVENT DATE: 20150107
